FAERS Safety Report 7049912-3 (Version None)
Quarter: 2010Q4

REPORT INFORMATION
  Report Type: 
  Country: None (occurrence: None)
  Receive Date: 20101013
  Receipt Date: 20100927
  Transmission Date: 20110411
  Serious: Yes (Hospitalization, Other)
  Sender: FDA-Public Use
  Company Number: ACO_02454_2010

PATIENT
  Age: 63 Year
  Sex: Female

DRUGS (7)
  1. AMPYRA [Suspect]
     Indication: PRODUCT USED FOR UNKNOWN INDICATION
     Dosage: (10 MG BID, EVERY 12 HOURS ORAL)
     Route: 048
     Dates: start: 20100616, end: 20100901
  2. DITROPAN [Concomitant]
  3. OXYBUTYNIN [Concomitant]
  4. FOSAMAX [Concomitant]
  5. VITAMIN D [Concomitant]
  6. CELLCEPT [Concomitant]
  7. UNSPECIFIED OTHER DRUGS FOR MS [Concomitant]

REACTIONS (3)
  - CONVULSION [None]
  - HYPERVENTILATION [None]
  - MEMORY IMPAIRMENT [None]
